FAERS Safety Report 9263977 (Version 1)
Quarter: 2013Q2

REPORT INFORMATION
  Report Type: Spontaneous
  Country: BR (occurrence: BR)
  Receive Date: 20130430
  Receipt Date: 20130430
  Transmission Date: 20140414
  Serious: Yes (Other)
  Sender: FDA-Public Use
  Company Number: BR-BRISTOL-MYERS SQUIBB COMPANY-18848648

PATIENT
  Sex: Male

DRUGS (3)
  1. METFORMIN HCL [Suspect]
     Indication: DIABETES MELLITUS
  2. LYRICA [Concomitant]
  3. GABAPENTINE [Concomitant]
     Indication: POLYNEUROPATHY

REACTIONS (2)
  - Foot fracture [Unknown]
  - Fall [Unknown]
